FAERS Safety Report 25009369 (Version 2)
Quarter: 2025Q1

REPORT INFORMATION
  Report Type: Spontaneous
  Country: US (occurrence: US)
  Receive Date: 20250225
  Receipt Date: 20250304
  Transmission Date: 20250409
  Serious: No
  Sender: PFIZER
  Company Number: US-PFIZER INC-202500042237

PATIENT
  Age: 67 Year
  Sex: Female

DRUGS (3)
  1. PAXLOVID [Suspect]
     Active Substance: NIRMATRELVIR\RITONAVIR
     Indication: COVID-19 treatment
     Dates: start: 20240824, end: 20240830
  2. OLANZAPINE [Concomitant]
     Active Substance: OLANZAPINE
  3. SIMVASTATIN [Concomitant]
     Active Substance: SIMVASTATIN

REACTIONS (13)
  - Dysgeusia [Recovered/Resolved]
  - Hypermetropia [Recovered/Resolved]
  - Dyspnoea [Recovered/Resolved]
  - Chest discomfort [Recovered/Resolved]
  - Pruritus [Recovered/Resolved]
  - Paranasal sinus discomfort [Recovered/Resolved]
  - Sinus congestion [Recovered/Resolved]
  - Paraesthesia [Recovered/Resolved]
  - Post-acute COVID-19 syndrome [Unknown]
  - Renal disorder [Unknown]
  - Red blood cell count increased [Unknown]
  - Inappropriate schedule of product administration [Unknown]
  - Contraindicated product administered [Unknown]

NARRATIVE: CASE EVENT DATE: 20240101
